FAERS Safety Report 8092941-1 (Version None)
Quarter: 2012Q1

REPORT INFORMATION
  Report Type: 
  Country: None (occurrence: None)
  Receive Date: 20120131
  Receipt Date: 20120120
  Transmission Date: 20120608
  Serious: Yes (Hospitalization)
  Sender: FDA-Public Use
  Company Number: US-BAYER-2011-122086

PATIENT
  Age: 45 Year
  Sex: Female
  Weight: 98.866 kg

DRUGS (14)
  1. MOTRIN [Concomitant]
     Indication: MIGRAINE
     Dosage: 800 MG, THREE TIMES DAILY AS NEEDED
     Route: 048
     Dates: start: 20050123
  2. MULTI-VITAMIN [Concomitant]
     Dosage: UNK UNK, QD
     Route: 048
  3. VICODIN [Concomitant]
  4. YAZ [Suspect]
     Indication: ACNE
  5. DIAZEPAM [Concomitant]
     Indication: ANXIETY
     Dosage: 5 MG, 1 UP TO 3X DAY AS NEEDED
     Route: 048
     Dates: start: 20050123
  6. FLEXERIL [Concomitant]
     Dosage: 10 MG, HS
     Route: 048
     Dates: start: 20050131
  7. DROSPIRENONE AND ETHINYL ESTRADIOL [Suspect]
  8. MUSCLE RELAXANT [Concomitant]
  9. YASMIN [Suspect]
     Indication: ACNE
  10. LIPITOR [Concomitant]
     Dosage: 10 MG, QD
     Route: 048
  11. HYDROCORTISONE [Concomitant]
  12. HYDROCODONE BITARTRATE AND ACETAMINOPHEN [Concomitant]
     Dosage: 7.5/500, 1-2 EVERY 4-6 HOURS AS NEEDED
     Route: 048
     Dates: start: 20050123
  13. IBUPROFEN [Concomitant]
  14. XENICAL [Concomitant]
     Dosage: 120 MG, 3X DAY WITH MEAL
     Route: 048

REACTIONS (3)
  - PAIN [None]
  - DEEP VEIN THROMBOSIS [None]
  - INJURY [None]
